FAERS Safety Report 23969239 (Version 1)
Quarter: 2024Q2

REPORT INFORMATION
  Report Type: Report from Study
  Country: US (occurrence: US)
  Receive Date: 20240612
  Receipt Date: 20240612
  Transmission Date: 20240716
  Serious: Yes (Death, Other)
  Sender: FDA-Public Use
  Company Number: US-JAZZ PHARMACEUTICALS-2024-US-009004

PATIENT
  Age: 71 Year
  Sex: Male

DRUGS (1)
  1. VYXEOS [Suspect]
     Active Substance: CYTARABINE\DAUNORUBICIN
     Indication: Acute myeloid leukaemia
     Dosage: UNK

REACTIONS (7)
  - Death [Fatal]
  - Cellulitis [Recovered/Resolved]
  - Nausea [Recovered/Resolved]
  - Peroneal nerve palsy [Recovered/Resolved]
  - Pharyngitis [Recovered/Resolved]
  - Bacteraemia [Recovered/Resolved]
  - QRS axis abnormal [Recovered/Resolved]

NARRATIVE: CASE EVENT DATE: 20181218
